FAERS Safety Report 11152069 (Version 2)
Quarter: 2015Q2

REPORT INFORMATION
  Report Type: Report from Study
  Country: DE (occurrence: DE)
  Receive Date: 20150601
  Receipt Date: 20150601
  Transmission Date: 20150821
  Serious: Yes (Death, Hospitalization)
  Sender: FDA-Public Use
  Company Number: DE-TEVA-565364USA

PATIENT
  Sex: Female

DRUGS (2)
  1. RITUXIMAB [Suspect]
     Active Substance: RITUXIMAB
     Indication: B-CELL LYMPHOMA
     Dosage: 375 MG/M2, PER PROTOCOL
     Route: 042
     Dates: start: 20110919, end: 20141106
  2. BENDAMUSTINE HYDROCHLORIDE [Suspect]
     Active Substance: BENDAMUSTINE HYDROCHLORIDE
     Indication: B-CELL LYMPHOMA
     Dosage: 180 MG/M2, PER PROTOCOL DAY 1 AND DAY 2 OF A 28 DAY CYCLE
     Route: 042
     Dates: start: 20110106, end: 20110611

REACTIONS (1)
  - Progressive multifocal leukoencephalopathy [Fatal]
